FAERS Safety Report 4855742-0 (Version None)
Quarter: 2005Q4

REPORT INFORMATION
  Report Type: 
  Country: None (occurrence: None)
  Receive Date: 20051215
  Receipt Date: 20051215
  Transmission Date: 20060501
  Serious: Yes (Other)
  Sender: FDA-Public Use
  Company Number: None

PATIENT
  Sex: Female
  Weight: 52.1637 kg

DRUGS (1)
  1. CIPRO [Suspect]
     Indication: DENTAL DISORDER PROPHYLAXIS
     Dosage: ORAL
     Route: 048

REACTIONS (11)
  - ASTHENIA [None]
  - CHILLS [None]
  - CONSTIPATION [None]
  - DIZZINESS [None]
  - DYSSTASIA [None]
  - FAECES DISCOLOURED [None]
  - FOOD POISONING [None]
  - HYPERHIDROSIS [None]
  - MALAISE [None]
  - OCCULT BLOOD POSITIVE [None]
  - TREMOR [None]
